FAERS Safety Report 8713228 (Version 3)
Quarter: 2012Q4

REPORT INFORMATION
  Report Type: Report from Study
  Country: US (occurrence: US)
  Receive Date: 20120808
  Receipt Date: 20120914
  Transmission Date: 20130627
  Serious: Yes (Hospitalization)
  Sender: FDA-Public Use
  Company Number: US-ABBOTT-12P-163-0963394-00

PATIENT
  Age: 31 None
  Sex: Male
  Weight: 79.45 kg

DRUGS (7)
  1. HUMIRA [Suspect]
     Indication: CROHN^S DISEASE
     Dosage: Loading Dose
     Route: 058
     Dates: start: 20120722, end: 20120722
  2. HUMIRA [Suspect]
     Dosage: Loading dose
     Route: 058
     Dates: start: 20120805, end: 20120805
  3. HUMIRA [Suspect]
  4. HUMIRA [Suspect]
  5. PENTASA [Concomitant]
     Indication: PRODUCT USED FOR UNKNOWN INDICATION
  6. IMURAN [Concomitant]
     Indication: PRODUCT USED FOR UNKNOWN INDICATION
  7. HYDROCODONE [Concomitant]
     Indication: PRODUCT USED FOR UNKNOWN INDICATION

REACTIONS (9)
  - Malaise [Unknown]
  - Abdominal pain [Recovering/Resolving]
  - Device malfunction [Unknown]
  - Device malfunction [Unknown]
  - Nausea [Recovering/Resolving]
  - Vomiting [Recovering/Resolving]
  - Abscess intestinal [Recovering/Resolving]
  - Colitis [Recovering/Resolving]
  - General physical health deterioration [Unknown]
